FAERS Safety Report 21404866 (Version 1)
Quarter: 2022Q3

REPORT INFORMATION
  Report Type: Spontaneous
  Country: US (occurrence: None)
  Receive Date: 20220930
  Receipt Date: 20220930
  Transmission Date: 20221027
  Serious: Yes (Hospitalization)
  Sender: FDA-Public Use
  Company Number: None

PATIENT
  Age: 61 Year
  Sex: Male
  Weight: 99 kg

DRUGS (1)
  1. APIXABAN [Suspect]
     Active Substance: APIXABAN
     Indication: Deep vein thrombosis
     Dosage: 2 MB BID PO
     Route: 048
     Dates: start: 20190914, end: 20220512

REACTIONS (5)
  - Anaemia [None]
  - Melaena [None]
  - Syncope [None]
  - Gastric ulcer [None]
  - Duodenal ulcer [None]

NARRATIVE: CASE EVENT DATE: 20220511
